FAERS Safety Report 9530340 (Version 1)
Quarter: 2013Q3

REPORT INFORMATION
  Report Type: Spontaneous
  Country: US (occurrence: US)
  Receive Date: 20130917
  Receipt Date: 20130917
  Transmission Date: 20140515
  Serious: Yes (Other)
  Sender: FDA-Public Use
  Company Number: US-MYLANLABS-2013S1020161

PATIENT
  Age: 70 Year
  Sex: Female

DRUGS (1)
  1. METFORMIN [Suspect]
     Indication: FOREIGN BODY ASPIRATION
     Dosage: 1 X PILL
     Route: 055

REACTIONS (2)
  - Bronchial injury [Recovering/Resolving]
  - Foreign body aspiration [Recovering/Resolving]
